FAERS Safety Report 4953439-X (Version None)
Quarter: 2006Q1

REPORT INFORMATION
  Report Type: 
  Country: None (occurrence: None)
  Receive Date: 20060324
  Receipt Date: 20060316
  Transmission Date: 20060701
  Serious: Yes (Hospitalization)
  Sender: FDA-Public Use
  Company Number: US-ABBOTT-06P-163-0328286-00

PATIENT
  Sex: Female
  Weight: 75.818 kg

DRUGS (2)
  1. SYNTHROID [Suspect]
     Indication: BASEDOW'S DISEASE
     Route: 048
     Dates: start: 20040101
  2. ATENOLOL [Concomitant]
     Indication: SUPRAVENTRICULAR TACHYCARDIA
     Route: 048
     Dates: start: 20040101

REACTIONS (3)
  - HYPOTHYROIDISM [None]
  - SUPRAVENTRICULAR TACHYCARDIA [None]
  - THYROTOXIC CRISIS [None]
